FAERS Safety Report 11529241 (Version 1)
Quarter: 2015Q3

REPORT INFORMATION
  Report Type: Spontaneous
  Country: US (occurrence: None)
  Receive Date: 20150918
  Receipt Date: 20150918
  Transmission Date: 20151125
  Serious: No
  Sender: FDA-Public Use
  Company Number: None

PATIENT
  Age: 60 Year
  Sex: Male
  Weight: 120.2 kg

DRUGS (1)
  1. LIDOCAINE PATCH 5% WATSON [Suspect]
     Active Substance: LIDOCAINE
     Indication: DIABETIC NEUROPATHY
     Route: 003

REACTIONS (2)
  - Drug ineffective [None]
  - Product physical consistency issue [None]

NARRATIVE: CASE EVENT DATE: 20150810
